FAERS Safety Report 19071643 (Version 1)
Quarter: 2021Q1

REPORT INFORMATION
  Report Type: Spontaneous
  Country: DE (occurrence: DE)
  Receive Date: 20210330
  Receipt Date: 20210330
  Transmission Date: 20210420
  Serious: Yes (Hospitalization)
  Sender: FDA-Public Use
  Company Number: DE-TEVA-2021-DE-1894488

PATIENT
  Age: 70 Year
  Sex: Female
  Weight: 74 kg

DRUGS (11)
  1. METFORMIN [Concomitant]
     Active Substance: METFORMIN HYDROCHLORIDE
     Dosage: 2000 MILLIGRAM DAILY; 1?0?1?0
  2. VICTOZA 6MG/ML INJEKTIONSL SUNG IN EINEM FERTIGPEN [Concomitant]
     Dosage: 1.8 MILLIGRAM DAILY;  0?0?1?0, PRE?FILLED SYRINGES
     Route: 058
  3. PRAMIPEXOL [Concomitant]
     Active Substance: PRAMIPEXOLE
     Dosage: 3.2 MILLIGRAM DAILY; 1?1?1?1
  4. TRAMADOL. [Concomitant]
     Active Substance: TRAMADOL
     Dosage: 800 MILLIGRAM DAILY; 1?1?1?1
  5. VOCADO 40MG/10MG [Concomitant]
     Dosage: 1 DOSAGE FORMS DAILY; 10|40 MG, 1?0?0?0
  6. OMEPRAZOL [Concomitant]
     Active Substance: OMEPRAZOLE
     Dosage: 80 MILLIGRAM DAILY; 1?0?1?0
  7. JARDIANCE [Concomitant]
     Active Substance: EMPAGLIFLOZIN
     Dosage: 10 MILLIGRAM DAILY; 1?0?0?0
  8. TOUJEO [Concomitant]
     Active Substance: INSULIN GLARGINE
     Dosage: 58 IU (INTERNATIONAL UNIT) DAILY; 58 IU, 0?0?0?1
     Route: 058
  9. SIMVASTATIN. [Concomitant]
     Active Substance: SIMVASTATIN
     Dosage: 40 MILLIGRAM DAILY; 0?0?1?0
  10. METOPROLOL. [Suspect]
     Active Substance: METOPROLOL
     Dosage: .5 DOSAGE FORMS DAILY; 95 MG, 0?0.5?0?0
  11. ASS 100 [Concomitant]
     Active Substance: ASPIRIN
     Dosage: 100 MILLIGRAM DAILY; 1?0?0?0

REACTIONS (3)
  - Cellulitis [Unknown]
  - Condition aggravated [Unknown]
  - Wound [Unknown]
